FAERS Safety Report 5370600-3 (Version None)
Quarter: 2007Q2

REPORT INFORMATION
  Report Type: 
  Country: None (occurrence: None)
  Receive Date: 20070622
  Receipt Date: 20070612
  Transmission Date: 20071010
  Serious: Yes (Life-Threatening)
  Sender: FDA-Public Use
  Company Number: 2007EU001255

PATIENT
  Age: 47 Year
  Sex: Male

DRUGS (1)
  1. PROGRAF [Suspect]
     Indication: STEM CELL TRANSPLANT
     Dosage: UNKNOWN/D

REACTIONS (7)
  - ACUTE GRAFT VERSUS HOST DISEASE IN SKIN [None]
  - AREFLEXIA [None]
  - CONVULSION [None]
  - ENCEPHALITIS HERPES [None]
  - HUMAN HERPES VIRUS 6 SEROLOGY POSITIVE [None]
  - RESPIRATORY FAILURE [None]
  - VIRAEMIA [None]
